FAERS Safety Report 6728621-1 (Version None)
Quarter: 2010Q2

REPORT INFORMATION
  Report Type: 
  Country: None (occurrence: None)
  Receive Date: 20100517
  Receipt Date: 20100504
  Transmission Date: 20101027
  Serious: Yes (Hospitalization)
  Sender: FDA-Public Use
  Company Number: US-ELI_LILLY_AND_COMPANY-US201005002838

PATIENT
  Age: 91 Year
  Sex: Female

DRUGS (2)
  1. SYMBYAX [Suspect]
     Indication: DEPRESSION
     Dosage: 1 D/F, UNKNOWN
     Route: 065
     Dates: start: 20100330, end: 20100502
  2. LORAZEPAM [Concomitant]

REACTIONS (5)
  - BALANCE DISORDER [None]
  - CONFUSIONAL STATE [None]
  - DRY MOUTH [None]
  - OFF LABEL USE [None]
  - TREMOR [None]
